FAERS Safety Report 18691166 (Version 2)
Quarter: 2021Q1

REPORT INFORMATION
  Report Type: Spontaneous
  Country: US (occurrence: US)
  Receive Date: 20210101
  Receipt Date: 20210204
  Transmission Date: 20210419
  Serious: No
  Sender: FDA-Public Use
  Company Number: US-ASTRAZENECA-2020SF69017

PATIENT
  Sex: Female
  Weight: 82.6 kg

DRUGS (2)
  1. SYMBICORT [Suspect]
     Active Substance: BUDESONIDE\FORMOTEROL FUMARATE DIHYDRATE
     Indication: ASTHMA
     Dosage: 160/4.5 MCG 2 PUFFS, TWO TIMES A DAY
     Route: 055
  2. ALBUTEROL. [Concomitant]
     Active Substance: ALBUTEROL
     Indication: ASTHMA
     Dosage: 90.0UG AS REQUIRED
     Route: 065

REACTIONS (5)
  - Device use issue [Unknown]
  - Condition aggravated [Not Recovered/Not Resolved]
  - Product dose omission issue [Unknown]
  - Device malfunction [Unknown]
  - Cough [Unknown]
